FAERS Safety Report 7576093-X (Version None)
Quarter: 2011Q2

REPORT INFORMATION
  Report Type: 
  Country: None (occurrence: None)
  Receive Date: 20110623
  Receipt Date: 20110623
  Transmission Date: 20111010
  Serious: No
  Sender: FDA-Public Use
  Company Number: None

PATIENT
  Age: 73 Year
  Sex: Female
  Weight: 63.5036 kg

DRUGS (4)
  1. METOCLOPRAMIDE [Suspect]
     Indication: GASTRIC DISORDER
     Dosage: 5 MG 4X DAILY
     Route: 048
     Dates: start: 20110101
  2. METOCLOPRAMIDE [Suspect]
     Indication: FLATULENCE
     Dosage: 5 MG 4X DAILY
     Route: 048
     Dates: start: 20110101
  3. METOCLOPRAMIDE [Suspect]
     Indication: GASTRIC DISORDER
     Dosage: 5 MG 4X DAILY
     Route: 048
     Dates: start: 20090101, end: 20100101
  4. METOCLOPRAMIDE [Suspect]
     Indication: FLATULENCE
     Dosage: 5 MG 4X DAILY
     Route: 048
     Dates: start: 20090101, end: 20100101

REACTIONS (3)
  - JAW DISORDER [None]
  - FATIGUE [None]
  - MOVEMENT DISORDER [None]
